FAERS Safety Report 13854264 (Version 2)
Quarter: 2017Q3

REPORT INFORMATION
  Report Type: Spontaneous
  Country: US (occurrence: US)
  Receive Date: 20170810
  Receipt Date: 20170911
  Transmission Date: 20171127
  Serious: Yes (Other)
  Sender: FDA-Public Use
  Company Number: US-GUERBET-US-20170142

PATIENT
  Age: 54 Year
  Sex: Female

DRUGS (2)
  1. DOTAREM [Suspect]
     Active Substance: GADOTERATE MEGLUMINE
     Indication: NUCLEAR MAGNETIC RESONANCE IMAGING SPINAL
     Route: 042
     Dates: start: 20170727, end: 20170727
  2. DOTAREM [Suspect]
     Active Substance: GADOTERATE MEGLUMINE
     Route: 042
     Dates: start: 20170727, end: 20170727

REACTIONS (1)
  - Anaphylactic reaction [Recovered/Resolved]

NARRATIVE: CASE EVENT DATE: 20170727
